FAERS Safety Report 6191554-6 (Version None)
Quarter: 2009Q2

REPORT INFORMATION
  Report Type: 
  Country: None (occurrence: None)
  Receive Date: 20090515
  Receipt Date: 20081210
  Transmission Date: 20091009
  Serious: Yes (Other)
  Sender: FDA-Public Use
  Company Number: FR-BAXTER-2008BH013891

PATIENT
  Age: 81 Year
  Sex: Female
  Weight: 56 kg

DRUGS (5)
  1. ENDOXAN BAXTER [Suspect]
     Indication: WALDENSTROM'S MACROGLOBULINAEMIA
     Route: 065
     Dates: start: 20051201, end: 20060201
  2. ENDOXAN BAXTER [Suspect]
     Route: 065
     Dates: start: 20060201, end: 20060701
  3. MABTHERA [Suspect]
     Indication: WALDENSTROM'S MACROGLOBULINAEMIA
     Route: 042
     Dates: start: 20060201, end: 20060701
  4. FLUDARABINE PHOSPHATE [Suspect]
     Indication: WALDENSTROM'S MACROGLOBULINAEMIA
     Route: 065
     Dates: start: 20060201, end: 20060701
  5. CHLORAMBUCIL [Suspect]
     Indication: WALDENSTROM'S MACROGLOBULINAEMIA
     Dosage: DOSE UNIT:UNKNOWN
     Route: 065
     Dates: start: 20000701, end: 20051101

REACTIONS (4)
  - ACUTE MYELOID LEUKAEMIA [None]
  - ANAEMIA [None]
  - INFECTION [None]
  - LUNG DISORDER [None]
